FAERS Safety Report 25669708 (Version 1)
Quarter: 2025Q3

REPORT INFORMATION
  Report Type: Spontaneous
  Country: US (occurrence: None)
  Receive Date: 20250811
  Receipt Date: 20250811
  Transmission Date: 20251020
  Serious: Yes (Hospitalization, Other)
  Sender: FDA-CTU
  Company Number: None

PATIENT
  Age: 63 Year
  Sex: Male
  Weight: 108 kg

DRUGS (13)
  1. LOPRESSOR [Suspect]
     Active Substance: METOPROLOL TARTRATE
     Indication: Blood pressure management
     Dosage: OTHER QUANTITY : 1 TABLET(S);?FREQUENCY : TWICE A DAY;?
     Route: 048
     Dates: start: 20250307, end: 20250720
  2. SPIRONOLACTONE [Suspect]
     Active Substance: SPIRONOLACTONE
  3. ALLOPURINOL [Concomitant]
     Active Substance: ALLOPURINOL
  4. AMLODIPINE [Concomitant]
     Active Substance: AMLODIPINE BESYLATE
  5. LISINOPRIL [Concomitant]
     Active Substance: LISINOPRIL
  6. FARXIGA [Concomitant]
     Active Substance: DAPAGLIFLOZIN PROPANEDIOL
  7. ECHINACEA [Concomitant]
     Active Substance: ECHINACEA, UNSPECIFIED
  8. elderberry meta mucil gummies [Concomitant]
  9. oil of oregano [Concomitant]
  10. vit a [Concomitant]
  11. B super [Concomitant]
  12. DD [Concomitant]
  13. VITAMINS [Concomitant]
     Active Substance: VITAMINS

REACTIONS (6)
  - Tremor [None]
  - Amnesia [None]
  - Abnormal behaviour [None]
  - Memory impairment [None]
  - Chest discomfort [None]
  - Euphoric mood [None]

NARRATIVE: CASE EVENT DATE: 20250309
